FAERS Safety Report 23860265 (Version 1)
Quarter: 2024Q2

REPORT INFORMATION
  Report Type: Spontaneous
  Country: US (occurrence: US)
  Receive Date: 20240515
  Receipt Date: 20240515
  Transmission Date: 20240716
  Serious: Yes (Other)
  Sender: FDA-Public Use
  Company Number: US-SA-SAC20240514000734

PATIENT
  Age: 67 Year
  Sex: Female

DRUGS (1)
  1. THYROGEN [Suspect]
     Active Substance: THYROTROPIN ALFA
     Indication: Thyroid cancer
     Dosage: 0.9 MG, QD
     Route: 030

REACTIONS (2)
  - Pneumonia [Recovered/Resolved]
  - Fatigue [Recovered/Resolved]

NARRATIVE: CASE EVENT DATE: 20240107
